FAERS Safety Report 9816674 (Version 1)
Quarter: 2014Q1

REPORT INFORMATION
  Report Type: Spontaneous
  Country: US (occurrence: US)
  Receive Date: 20140114
  Receipt Date: 20140114
  Transmission Date: 20141002
  Serious: Yes (Other)
  Sender: FDA-Public Use
  Company Number: US-ENDO PHARMACEUTICALS INC.-ENDC20130030

PATIENT
  Sex: Male

DRUGS (1)
  1. ENDOCET 5MG/325MG [Suspect]
     Indication: MIGRAINE
     Dosage: 5 MG/325 MG
     Route: 048

REACTIONS (2)
  - Intentional drug misuse [Unknown]
  - Drug ineffective for unapproved indication [Recovered/Resolved]
